FAERS Safety Report 7435058-9 (Version None)
Quarter: 2011Q2

REPORT INFORMATION
  Report Type: 
  Country: None (occurrence: None)
  Receive Date: 20110425
  Receipt Date: 20110412
  Transmission Date: 20111010
  Serious: Yes (Hospitalization, Other)
  Sender: FDA-Public Use
  Company Number: PHHO2007BR17868

PATIENT
  Sex: Female
  Weight: 80 kg

DRUGS (4)
  1. BAMIFIX [Concomitant]
     Indication: DYSPNOEA
     Dosage: 2 DF, QD
     Route: 048
  2. FORASEQ [Concomitant]
     Indication: ASTHMA
     Dosage: 1 DF, QD,400 MCG
  3. DIOVAN HCT [Suspect]
     Indication: HYPERTENSION
     Dosage: 1 DF, QD,
     Route: 048
     Dates: start: 20050101
  4. MANIDIPINE [Concomitant]

REACTIONS (15)
  - HEADACHE [None]
  - DRY MOUTH [None]
  - DIABETES MELLITUS [None]
  - NECK PAIN [None]
  - SOMNOLENCE [None]
  - PARKINSON'S DISEASE [None]
  - MENTAL IMPAIRMENT [None]
  - HYPERTENSION [None]
  - DEPRESSION [None]
  - DIZZINESS [None]
  - CARDIO-RESPIRATORY ARREST [None]
  - FALL [None]
  - DRUG DEPENDENCE [None]
  - SYNCOPE [None]
  - VISION BLURRED [None]
